FAERS Safety Report 4948261-4 (Version None)
Quarter: 2006Q1

REPORT INFORMATION
  Report Type: 
  Country: None (occurrence: None)
  Receive Date: 20060310
  Receipt Date: 20060228
  Transmission Date: 20060701
  Serious: Yes (Other)
  Sender: FDA-Public Use
  Company Number: 000#8#2006-00125

PATIENT
  Age: 56 Year
  Sex: Male

DRUGS (2)
  1. NITROGLYCERIN [Suspect]
     Indication: ACUTE MYOCARDIAL INFARCTION
     Dosage: 400 MCG
     Route: 060
  2. ASPIRIN [Concomitant]

REACTIONS (5)
  - BLOOD PRESSURE IMMEASURABLE [None]
  - CORONARY ARTERY OCCLUSION [None]
  - CORONARY ARTERY THROMBOSIS [None]
  - VENTRICULAR HYPOKINESIA [None]
  - VOMITING [None]
